FAERS Safety Report 20508675 (Version 1)
Quarter: 2022Q1

REPORT INFORMATION
  Report Type: Spontaneous
  Country: CO (occurrence: CO)
  Receive Date: 20220223
  Receipt Date: 20220223
  Transmission Date: 20220423
  Serious: Yes (Other)
  Sender: FDA-Public Use
  Company Number: CO-PFIZER INC-202200276447

PATIENT
  Age: 73 Year
  Sex: Female

DRUGS (1)
  1. XELJANZ XR [Suspect]
     Active Substance: TOFACITINIB CITRATE
     Dosage: 11 MG, DAILY
     Route: 048

REACTIONS (5)
  - Arthritis [Unknown]
  - Illness [Recovering/Resolving]
  - Pain in jaw [Unknown]
  - Eating disorder [Unknown]
  - Hand deformity [Unknown]

NARRATIVE: CASE EVENT DATE: 20211201
